FAERS Safety Report 9549759 (Version 2)
Quarter: 2013Q3

REPORT INFORMATION
  Report Type: Spontaneous
  Country: US (occurrence: US)
  Receive Date: 20130924
  Receipt Date: 20130924
  Transmission Date: 20140515
  Serious: No
  Sender: FDA-Public Use
  Company Number: US-ALLERGAN-1308150US

PATIENT
  Age: 80 Year
  Sex: Female

DRUGS (6)
  1. LUMIGAN 0.01% [Suspect]
     Indication: GLAUCOMA
     Dosage: 2 GTT, QHS
     Route: 047
     Dates: start: 20130522
  2. REFRESH OPTIVE [Concomitant]
     Indication: DRY EYE
  3. DIOVAN                             /01319601/ [Concomitant]
     Indication: BLOOD PRESSURE
     Dosage: UNK UNK, BID
     Route: 048
  4. PREMARIN                           /00073001/ [Concomitant]
     Indication: PRODUCT USED FOR UNKNOWN INDICATION
     Dosage: 0.3 MG, UNK
  5. ASA [Concomitant]
     Indication: PRODUCT USED FOR UNKNOWN INDICATION
     Dosage: 81 MG, UNK
  6. TYLENOL ARTHRITIS [Concomitant]
     Indication: ARTHRITIS

REACTIONS (5)
  - Vomiting [Recovered/Resolved]
  - Abdominal pain [Recovered/Resolved]
  - Abdominal pain upper [Recovered/Resolved]
  - Nausea [Recovered/Resolved]
  - Intraocular pressure decreased [Unknown]
